FAERS Safety Report 20959104 (Version 1)
Quarter: 2022Q2

REPORT INFORMATION
  Report Type: Spontaneous
  Country: US (occurrence: US)
  Receive Date: 20220614
  Receipt Date: 20220614
  Transmission Date: 20220721
  Serious: Yes (Other)
  Sender: FDA-Public Use
  Company Number: US-BAYER-2022A078783

PATIENT
  Age: 70 Year
  Sex: Male

DRUGS (13)
  1. NUBEQA [Suspect]
     Active Substance: DAROLUTAMIDE
     Indication: Prostate cancer metastatic
     Dosage: UNK
  2. XTANDI [Suspect]
     Active Substance: ENZALUTAMIDE
     Indication: Prostate cancer metastatic
     Dosage: 160 MG
     Route: 048
     Dates: start: 20220102, end: 2022
  3. METOPROLOL [Concomitant]
     Active Substance: METOPROLOL
  4. FLOMAX [Concomitant]
     Active Substance: TAMSULOSIN HYDROCHLORIDE
  5. ASPIRIN [Concomitant]
     Active Substance: ASPIRIN
  6. FISH OIL [Concomitant]
     Active Substance: FISH OIL
  7. FLAXSEED [Concomitant]
     Active Substance: FLAX SEED
  8. FIBER [Concomitant]
     Active Substance: PSYLLIUM HUSK
  9. POLYETHYLENE GLYCOL 3350 [Concomitant]
     Active Substance: POLYETHYLENE GLYCOL 3350
  10. LYRICA [Concomitant]
     Active Substance: PREGABALIN
  11. GABAPENTIN [Concomitant]
     Active Substance: GABAPENTIN
  12. VALIUM [Concomitant]
     Active Substance: DIAZEPAM
  13. VITAMINS NOS [Concomitant]
     Active Substance: VITAMINS
     Dosage: UNK UNK, QD

REACTIONS (3)
  - Neuropathy peripheral [Not Recovered/Not Resolved]
  - Temperature intolerance [Not Recovered/Not Resolved]
  - Off label use [None]

NARRATIVE: CASE EVENT DATE: 20220101
